FAERS Safety Report 7072906-9 (Version None)
Quarter: 2010Q4

REPORT INFORMATION
  Report Type: 
  Country: None (occurrence: None)
  Receive Date: 20101029
  Receipt Date: 20100329
  Transmission Date: 20110411
  Serious: No
  Sender: FDA-Public Use
  Company Number: A0852395A

PATIENT
  Age: 80 Year
  Sex: Female

DRUGS (10)
  1. ADVAIR DISKUS 100/50 [Suspect]
     Indication: PRODUCT USED FOR UNKNOWN INDICATION
     Dosage: 1PUFF TWICE PER DAY
     Route: 055
     Dates: start: 20091001
  2. LIPOSYN [Concomitant]
  3. WELLBUTRIN [Concomitant]
  4. PREMARIN [Concomitant]
  5. LISINOPRIL [Concomitant]
  6. SYNTHROID [Concomitant]
  7. ALDACTONE [Concomitant]
  8. RESTASIS [Concomitant]
  9. DIGOXIN [Concomitant]
  10. BUMEX [Concomitant]

REACTIONS (1)
  - DYSPHONIA [None]
